FAERS Safety Report 7137162-1 (Version None)
Quarter: 2010Q4

REPORT INFORMATION
  Report Type: 
  Country: None (occurrence: None)
  Receive Date: 20101206
  Receipt Date: 20070209
  Transmission Date: 20110411
  Serious: Yes (Death)
  Sender: FDA-Public Use
  Company Number: US-ACTELION-A-US2007-14294

PATIENT

DRUGS (4)
  1. ILOPROST INHALATION SOLUTION 5UG US [Suspect]
     Indication: PULMONARY HYPERTENSION
     Dosage: 5 UG, 6-9 X /DAY
     Route: 055
     Dates: start: 20060822, end: 20070203
  2. TRACLEER [Concomitant]
     Indication: PULMONARY HYPERTENSION
     Route: 048
     Dates: end: 20070203
  3. ASPIRIN [Concomitant]
     Dates: end: 20070203
  4. PLAVIX [Concomitant]
     Indication: HYPERCHOLESTEROLAEMIA

REACTIONS (4)
  - DEATH [None]
  - DIZZINESS [None]
  - HEADACHE [None]
  - NAUSEA [None]
